FAERS Safety Report 18631478 (Version 1)
Quarter: 2020Q4

REPORT INFORMATION
  Report Type: Spontaneous
  Country: US (occurrence: US)
  Receive Date: 20201217
  Receipt Date: 20201217
  Transmission Date: 20210114
  Serious: No
  Sender: FDA-Public Use
  Company Number: US-ENDO PHARMACEUTICALS INC-2020-004475

PATIENT
  Age: 34 Year
  Sex: Male

DRUGS (4)
  1. XIAFLEX [Suspect]
     Active Substance: COLLAGENASE CLOSTRIDIUM HISTOLYTICUM
     Indication: PEYRONIE^S DISEASE
     Dosage: UNK UNKNOWN, UNKNOWN; CYCLE THREE, INJECTION ONE
     Route: 026
     Dates: start: 20200603
  2. XIAFLEX [Suspect]
     Active Substance: COLLAGENASE CLOSTRIDIUM HISTOLYTICUM
     Dosage: UNK UNKNOWN, UNKNOWN; CYCLE ONE, INJECTION ONE AND TWO
     Route: 026
  3. XIAFLEX [Suspect]
     Active Substance: COLLAGENASE CLOSTRIDIUM HISTOLYTICUM
     Dosage: UNK UNKNOWN, UNKNOWN; CYCLE ONETWO, INJECTION ONE AND TWO
     Route: 026
  4. XIAFLEX [Suspect]
     Active Substance: COLLAGENASE CLOSTRIDIUM HISTOLYTICUM
     Dosage: UNK UNKNOWN, UNKNOWN; CYCLE THREE, INJECTION TWO
     Route: 026
     Dates: start: 20200608

REACTIONS (4)
  - Feeling hot [Recovered/Resolved]
  - Chest discomfort [Recovered/Resolved]
  - Dizziness [Recovered/Resolved]
  - Abdominal pain [Recovered/Resolved]

NARRATIVE: CASE EVENT DATE: 20200603
